FAERS Safety Report 7772329-0 (Version None)
Quarter: 2011Q3

REPORT INFORMATION
  Report Type: 
  Country: None (occurrence: None)
  Receive Date: 20110922
  Receipt Date: 20110712
  Transmission Date: 20111222
  Serious: Yes (Hospitalization)
  Sender: FDA-Public Use
  Company Number: US-ASTRAZENECA-2011SE31646

PATIENT
  Age: 19727 Day
  Sex: Male
  Weight: 107.5 kg

DRUGS (10)
  1. SINGULAIR [Concomitant]
     Dates: start: 20080401
  2. DEPAKOTE [Concomitant]
     Indication: BIPOLAR DISORDER
     Dosage: 1500 EVERY AT BEDTIME
     Dates: start: 20071019
  3. ALBUTEROL [Concomitant]
     Dates: start: 20080401
  4. TOPAMAX [Concomitant]
     Dosage: 100 TO 200 MG AT BEDTIME
     Dates: start: 20071019
  5. SIMVASTATIN [Concomitant]
     Indication: HYPERCHOLESTEROLAEMIA
     Dates: start: 20090212
  6. SEROQUEL [Suspect]
     Indication: BIPOLAR DISORDER
     Route: 048
     Dates: start: 20040101
  7. SEROQUEL [Suspect]
     Dosage: 50-100 TAKE AT BED TIME
     Route: 048
     Dates: start: 20071019
  8. ENALAPRIL MALEATE [Concomitant]
     Dosage: 2.5 ONCE A DAY
     Dates: start: 20090212
  9. ASPIRIN [Concomitant]
     Dates: start: 20090212
  10. GEODON [Concomitant]
     Indication: BIPOLAR DISORDER
     Route: 048
     Dates: start: 20071019

REACTIONS (2)
  - DIABETES MELLITUS INADEQUATE CONTROL [None]
  - DIABETIC KETOACIDOSIS [None]
